FAERS Safety Report 4610792-4 (Version None)
Quarter: 2005Q2

REPORT INFORMATION
  Report Type: 
  Country: None (occurrence: None)
  Receive Date: 20050223
  Receipt Date: 20040422
  Transmission Date: 20051028
  Serious: Yes (Hospitalization)
  Sender: FDA-Public Use
  Company Number: WAES0310USA01447

PATIENT
  Age: 41 Year
  Sex: Male

DRUGS (2)
  1. ZOCOR [Suspect]
     Indication: HYPERCHOLESTEROLAEMIA
     Dosage: 20 MG/ DAILY/ PO
     Route: 048
     Dates: start: 20020320, end: 20021112
  2. COZAAR [Concomitant]

REACTIONS (1)
  - RHABDOMYOLYSIS [None]
